FAERS Safety Report 7795202-0 (Version None)
Quarter: 2011Q3

REPORT INFORMATION
  Report Type: 
  Country: None (occurrence: None)
  Receive Date: 20110930
  Receipt Date: 20110920
  Transmission Date: 20111222
  Serious: Yes (Hospitalization, Other)
  Sender: FDA-Public Use
  Company Number: 2011P1009017

PATIENT
  Age: 32 Year
  Sex: Female

DRUGS (1)
  1. GLYBURIDE [Suspect]
     Dosage: 2.5 MGX;X3;PO
     Route: 048

REACTIONS (4)
  - DEPRESSED LEVEL OF CONSCIOUSNESS [None]
  - ENCEPHALOPATHY [None]
  - HEMIPARESIS [None]
  - HYPOGLYCAEMIA [None]
